FAERS Safety Report 25378408 (Version 1)
Quarter: 2025Q2

REPORT INFORMATION
  Report Type: Spontaneous
  Country: US (occurrence: US)
  Receive Date: 20250530
  Receipt Date: 20250530
  Transmission Date: 20250717
  Serious: No
  Sender: MISSION PHARMACAL COMPANY
  Company Number: US-Mission Pharmacal Company-2177765

PATIENT
  Age: 34 Year
  Sex: Female

DRUGS (9)
  1. THIOLA EC [Suspect]
     Active Substance: TIOPRONIN
     Indication: Cystinuria
     Dates: start: 20191031
  2. THIOLA [Suspect]
     Active Substance: TIOPRONIN
     Dates: start: 20140823, end: 20190930
  3. AIMOVIG [Concomitant]
     Active Substance: ERENUMAB-AOOE
  4. SUMATRIPTAN [Concomitant]
     Active Substance: SUMATRIPTAN
  5. DAYVIGO [Concomitant]
     Active Substance: LEMBOREXANT
  6. ALPRAZOLAM [Concomitant]
     Active Substance: ALPRAZOLAM
  7. QUETIAPINE [Concomitant]
     Active Substance: QUETIAPINE
  8. VITAMIN D [Concomitant]
     Active Substance: VITAMIN D NOS
  9. PROMETHAZINE [Concomitant]
     Active Substance: PROMETHAZINE HYDROCHLORIDE

REACTIONS (1)
  - Drug ineffective [Unknown]
